FAERS Safety Report 24654377 (Version 1)
Quarter: 2024Q4

REPORT INFORMATION
  Report Type: Spontaneous
  Country: ES (occurrence: ES)
  Receive Date: 20241122
  Receipt Date: 20241122
  Transmission Date: 20250115
  Serious: Yes (Hospitalization)
  Sender: BAUSCH AND LOMB
  Company Number: None

PATIENT
  Age: 85 Year
  Sex: Male

DRUGS (16)
  1. ENALAPRIL [Suspect]
     Active Substance: ENALAPRIL
     Indication: Cardiac failure
     Dosage: CODE NOT BROKEN
     Route: 048
     Dates: start: 20101202, end: 20130404
  2. ENALAPRIL [Suspect]
     Active Substance: ENALAPRIL
     Dosage: DOSE PER VOLUME: 10 MG-MILIGRAM FREQUENCY UNIT NUMBER: 2 FREQUENCY UNIT: 1 DAY
     Route: 048
     Dates: start: 20130405, end: 20130711
  3. SINTROM [Suspect]
     Active Substance: ACENOCOUMAROL
     Indication: Atrial fibrillation
     Dosage: VARIABLE DOSE/CHANGEABLE DOSE,  60 TABLETS
     Route: 065
     Dates: end: 20140528
  4. CLOPIDOGREL [Suspect]
     Active Substance: CLOPIDOGREL BISULFATE
     Indication: Atrial fibrillation
     Dosage: 75 MG, QD, NO. OF SOCKETS PER FREQUENCY UNIT: 1, FREQUENCY UNIT: 1 DAY
     Route: 048
     Dates: start: 20120331, end: 20130711
  5. ALISKIREN [Suspect]
     Active Substance: ALISKIREN
     Indication: Cardiac failure
     Dosage: CODE NOT BROKEN
     Route: 048
     Dates: start: 20101202, end: 20130404
  6. FUROSEMIDE [Concomitant]
     Active Substance: FUROSEMIDE
     Indication: Cardiac failure chronic
     Dosage: DOSE UNIT FREQUENCY: 120 MG-MILLIGRAMS, NO. OF SOCKETS PER FREQUENCY UNIT: 3 FREQUENCY UNIT: 1 DAY
     Route: 048
     Dates: start: 20110915, end: 20130711
  7. BISOPROLOL [Concomitant]
     Active Substance: BISOPROLOL
     Indication: Atrial fibrillation
     Dosage: DOSE PER DOSE: 5 MG-MILLIGRAMS || NO. OF SOCKETS PER FREQUENCY UNIT: 1 || FREQUENCY UNIT: 1 DAY
     Route: 048
     Dates: end: 20130711
  8. ATORVASTATIN [Concomitant]
     Active Substance: ATORVASTATIN
     Indication: Dyslipidaemia
     Dosage: DOSE PER DOSE: 80 MG-MILLIGRAMS || NO. OF SOCKETS PER FREQUENCY UNIT: 1 || FREQUENCY UNIT: 1 DAY
     Route: 048
     Dates: end: 20130711
  9. CHLORTHALIDONE [Concomitant]
     Active Substance: CHLORTHALIDONE
     Indication: Cardiac failure chronic
     Dosage: DOSE PER DOSE: 25 MG-MILLIGRAMS || NO. OF SOCKETS PER FREQUENCY UNIT: 1 || FREQUENCY UNIT: 1 DAY
     Route: 048
     Dates: start: 20140409, end: 20140515
  10. INSULINS [Concomitant]
     Indication: Type 2 diabetes mellitus
     Dosage: VARIABLE DOSE
     Route: 048
  11. EPLERENONE [Concomitant]
     Active Substance: EPLERENONE
     Indication: Oedema peripheral
     Dosage: DOSE PER DOSE: 25 MG-MILLIGRAMS || NO. OF SOCKETS PER FREQUENCY UNIT: 1 || FREQUENCY UNIT: 1 DAY
     Route: 048
     Dates: start: 20130628, end: 20130711
  12. CARVEDILOL [Concomitant]
     Active Substance: CARVEDILOL
     Indication: Atrial fibrillation
     Dosage: DOSE PER DOSE: 6,125 MG-MILLIGRAMS || NO. OF SOCKETS PER FREQUENCY UNIT: 2 || FREQUENCY UNIT: 1 DAY
     Route: 048
     Dates: start: 20130713
  13. DUPHALAC 10 G [Concomitant]
     Indication: Constipation
     Dosage: ON DEMAND, ORAL SOLUTION IN SAMPLE, 10 SACHETS
     Route: 065
     Dates: start: 20101202
  14. FLUIMUCIL FORTE 600 mg [Concomitant]
     Indication: Prophylaxis
     Dosage: NO. OF SOCKETS PER FREQUENCY UNIT: 1, FREQUENCY UNIT: 1 DAY, 10 TABLETS
     Route: 048
     Dates: start: 20130723, end: 20131220
  15. RAMIPRIL [Concomitant]
     Active Substance: RAMIPRIL
     Indication: Cardiac failure chronic
     Dosage: DOSE PER DOSE: 2.5 G-GRAMS || NO. OF SOCKETS PER FREQUENCY UNIT: 1 || FREQUENCY UNIT: 1 DAY
     Route: 048
     Dates: start: 20130722, end: 20131022
  16. ENALAPRIL [Concomitant]
     Active Substance: ENALAPRIL
     Indication: Atrial fibrillation
     Dosage: 20 MG-MILLIGRAMS, DOSE PER DOSE: 10 MG-MILLIGRAMS, NO. OF SOCKETS PER FREQUENCY UNIT: 2, 1 DAY
     Route: 048
     Dates: start: 20130405, end: 20130711

REACTIONS (6)
  - Epistaxis [Recovered/Resolved]
  - Respiratory failure [Recovered/Resolved]
  - Haematuria [Recovered/Resolved]
  - Cardiac failure chronic [Recovered/Resolved]
  - Lower respiratory tract infection [Recovered/Resolved]
  - Bronchitis [Recovered/Resolved]

NARRATIVE: CASE EVENT DATE: 20130618
